FAERS Safety Report 8523128-3 (Version None)
Quarter: 2012Q3

REPORT INFORMATION
  Report Type: 
  Country: None (occurrence: None)
  Receive Date: 20120718
  Receipt Date: 20120718
  Transmission Date: 20120928
  Serious: Yes (Hospitalization)
  Sender: FDA-Public Use
  Company Number: None

PATIENT
  Age: 56 Year
  Sex: Male
  Weight: 67.5 kg

DRUGS (2)
  1. ACETAMINOPHEN [Suspect]
     Indication: NEOPLASM MALIGNANT
     Dosage: MG EVERY DAY PO
     Route: 048
     Dates: start: 20101124
  2. ACETAMINOPHEN [Suspect]
     Indication: NEOPLASM MALIGNANT
     Dosage: MG EVERY DAY PO
     Route: 048
     Dates: start: 20120208

REACTIONS (2)
  - HEPATIC CIRRHOSIS [None]
  - CONDITION AGGRAVATED [None]
